FAERS Safety Report 8881409 (Version 4)
Quarter: 2013Q2

REPORT INFORMATION
  Report Type: Spontaneous
  Country: US (occurrence: US)
  Receive Date: 20121101
  Receipt Date: 20130517
  Transmission Date: 20140414
  Serious: Yes (Other)
  Sender: FDA-Public Use
  Company Number: US-ASTRAZENECA-2012SE81733

PATIENT
  Age: 52 Year
  Sex: Female
  Weight: 114.3 kg

DRUGS (8)
  1. NEXIUM [Suspect]
     Indication: GASTROOESOPHAGEAL REFLUX DISEASE
     Route: 048
     Dates: start: 2007
  2. CELEBREX [Concomitant]
     Indication: ARTHRITIS
     Dates: start: 2006
  3. CYMBALTA [Concomitant]
     Indication: DEPRESSION
     Dates: start: 2009
  4. ATROVENT [Concomitant]
     Dosage: 1-2 QID
     Dates: start: 20111019
  5. VENTOLIN [Concomitant]
     Dosage: AS NEEDED
     Dates: start: 20111019
  6. COMBIVENT [Concomitant]
     Dosage: 16/103 MCG, 2 QID
     Dates: start: 20111017
  7. BLACK COHESH [Concomitant]
     Indication: HOT FLUSH
  8. ZEGRID [Concomitant]

REACTIONS (17)
  - Weight increased [Recovered/Resolved]
  - Decreased appetite [Recovered/Resolved]
  - Dyspepsia [Recovered/Resolved]
  - Arthralgia [Recovered/Resolved]
  - Nasopharyngitis [Unknown]
  - Intervertebral disc degeneration [Unknown]
  - Osteoarthritis [Unknown]
  - Spinal pain [Unknown]
  - Muscle spasms [Unknown]
  - Spinal disorder [Unknown]
  - Neck pain [Unknown]
  - Dysphagia [Unknown]
  - Gastrooesophageal reflux disease [Unknown]
  - Depression [Unknown]
  - Headache [Unknown]
  - Arthralgia [Unknown]
  - Intentional drug misuse [Unknown]
